FAERS Safety Report 18922870 (Version 12)
Quarter: 2024Q4

REPORT INFORMATION
  Report Type: Spontaneous
  Country: FR (occurrence: FR)
  Receive Date: 20210222
  Receipt Date: 20241007
  Transmission Date: 20250115
  Serious: Yes (Death, Life-Threatening, Hospitalization, Other)
  Sender: MYLAN
  Company Number: FR-ETHYPHARM-201701008

PATIENT
  Age: 34 Year
  Sex: Male
  Weight: 79 kg

DRUGS (53)
  1. QUETIAPINE FUMARATE [Interacting]
     Active Substance: QUETIAPINE FUMARATE
     Indication: Back pain
     Dosage: 1 DOSAGE FORM, TID (1 IN THE MORNING, 1 AT NOON AND 1 IN THE EVENING FOR BACK PAIN AFTER TRANSPORT;)
     Route: 065
     Dates: start: 201608
  2. ACETAMINOPHEN [Suspect]
     Active Substance: ACETAMINOPHEN
     Indication: Product used for unknown indication
     Dosage: UNK
     Route: 065
  3. FENTANYL [Interacting]
     Active Substance: FENTANYL
     Indication: Back pain
     Dosage: UNK
     Route: 065
     Dates: start: 2016, end: 2016
  4. TRAMADOL [Interacting]
     Active Substance: TRAMADOL
     Indication: Back pain
     Dosage: UNK
     Route: 065
     Dates: start: 2016, end: 2016
  5. MIANSERIN [Suspect]
     Active Substance: MIANSERIN
     Indication: Back pain
     Dosage: UNK
     Route: 065
     Dates: start: 2016, end: 2016
  6. IBUPROFEN [Suspect]
     Active Substance: IBUPROFEN
     Indication: Back pain
     Dosage: UNK THERAPY START DATE: //2016 THERAPY END DATE: //2016
     Route: 048
     Dates: start: 2016, end: 2016
  7. IBUPROFEN [Suspect]
     Active Substance: IBUPROFEN
     Indication: Back pain
  8. PAROXETINE MESYLATE [Suspect]
     Active Substance: PAROXETINE MESYLATE
     Indication: Back pain
     Dosage: UNK
     Route: 048
     Dates: start: 20160817, end: 20160908
  9. PRAZEPAM [Interacting]
     Active Substance: PRAZEPAM
     Indication: Product used for unknown indication
     Dosage: UNK
     Route: 048
  10. SKENAN [Interacting]
     Active Substance: MORPHINE SULFATE
     Indication: Back pain
     Dosage: 1 DOSAGE FORM, QD
     Route: 065
     Dates: start: 201608, end: 20160908
  11. OXYCONTIN [Interacting]
     Active Substance: OXYCODONE HYDROCHLORIDE
     Indication: Product used for unknown indication
     Dosage: UNK
     Route: 065
  12. OXYCONTIN [Interacting]
     Active Substance: OXYCODONE HYDROCHLORIDE
     Indication: Product used for unknown indication
  13. VALIUM [Interacting]
     Active Substance: DIAZEPAM
     Indication: Bipolar disorder
     Dosage: UNK
     Route: 048
     Dates: start: 20160902, end: 20160905
  14. CLOBAZAM [Interacting]
     Active Substance: CLOBAZAM
     Indication: Product used for unknown indication
     Dosage: UNK
     Route: 065
     Dates: start: 201608, end: 20160908
  15. CLOTIAZEPAM [Interacting]
     Active Substance: CLOTIAZEPAM
     Indication: Product used for unknown indication
     Dosage: UNK
     Route: 065
  16. CLOTIAZEPAM [Interacting]
     Active Substance: CLOTIAZEPAM
     Dosage: UNK
     Route: 065
  17. SKENAN [Interacting]
     Active Substance: MORPHINE SULFATE
     Indication: Back pain
     Dosage: UNK
     Route: 065
     Dates: start: 20160902, end: 20160905
  18. ARTANE [Suspect]
     Active Substance: TRIHEXYPHENIDYL HYDROCHLORIDE
     Indication: Product used for unknown indication
     Dosage: 5 MILLIGRAM
     Route: 048
     Dates: start: 201608, end: 20160908
  19. QUETIAPINE FUMARATE [Suspect]
     Active Substance: QUETIAPINE FUMARATE
     Indication: Product used for unknown indication
     Dosage: UNK
     Route: 048
     Dates: start: 20160830
  20. THIOCOLCHICOSIDE [Suspect]
     Active Substance: THIOCOLCHICOSIDE
     Indication: Product used for unknown indication
     Dosage: UNK
     Route: 065
  21. THIOCOLCHICOSIDE [Suspect]
     Active Substance: THIOCOLCHICOSIDE
     Indication: Product used for unknown indication
     Dosage: UNK
  22. ETIFOXINE [Suspect]
     Active Substance: ETIFOXINE
     Indication: Product used for unknown indication
     Dosage: UNK
     Route: 065
     Dates: start: 201608, end: 20160908
  23. PAROXETINE [Suspect]
     Active Substance: PAROXETINE
     Indication: Back pain
     Dosage: 20 MILLIGRAM
     Route: 048
  24. FENTANYL [Suspect]
     Active Substance: FENTANYL
     Indication: Back pain
     Dosage: UNK
     Route: 062
     Dates: end: 2016
  25. KETAMINE [Suspect]
     Active Substance: KETAMINE
     Indication: Back pain
     Dosage: UNKTHERAPY START DATE: //2016 THERAPY END DATE: //2016
     Route: 065
     Dates: start: 2016, end: 2016
  26. KETAMINE [Suspect]
     Active Substance: KETAMINE
     Indication: Back pain
  27. CODEINE PHOSPHATE\IBUPROFEN [Suspect]
     Active Substance: CODEINE PHOSPHATE\IBUPROFEN
     Indication: Back pain
     Dosage: 1 DOSAGE FORM
     Route: 048
     Dates: start: 2016, end: 2016
  28. CODEINE PHOSPHATE\IBUPROFEN [Suspect]
     Active Substance: CODEINE PHOSPHATE\IBUPROFEN
     Dosage: TID, 3 TIME A DAY, 1 IN THE MORNING, 1 AT NOON AND 1 IN THE EVENING)
     Route: 048
     Dates: end: 2016
  29. ACETAMINOPHEN\CODEINE PHOSPHATE [Suspect]
     Active Substance: ACETAMINOPHEN\CODEINE PHOSPHATE
     Indication: Product used for unknown indication
     Dosage: UNK
     Route: 048
  30. TRAMADOL HYDROCHLORIDE [Suspect]
     Active Substance: TRAMADOL HYDROCHLORIDE
     Indication: Product used for unknown indication
     Dosage: UNK
     Route: 048
     Dates: start: 20160903
  31. FENTANYL [Suspect]
     Active Substance: FENTANYL
     Indication: Back pain
     Dosage: UNK
     Route: 003
     Dates: start: 2016, end: 2016
  32. MIANSERIN HYDROCHLORIDE [Suspect]
     Active Substance: MIANSERIN HYDROCHLORIDE
     Indication: Back pain
     Dosage: UNKTHERAPY START DATE: //2016 THERAPY END DATE: //2016
     Route: 065
     Dates: start: 2016, end: 2016
  33. MIANSERIN HYDROCHLORIDE [Suspect]
     Active Substance: MIANSERIN HYDROCHLORIDE
     Indication: Bipolar disorder
  34. ACETAMINOPHEN\TRAMADOL [Suspect]
     Active Substance: ACETAMINOPHEN\TRAMADOL
     Indication: Product used for unknown indication
     Dosage: UNK
     Route: 065
  35. OXAZEPAM [Suspect]
     Active Substance: OXAZEPAM
     Indication: Bipolar disorder
     Dosage: UNK
     Route: 065
  36. TEMAZEPAM [Suspect]
     Active Substance: TEMAZEPAM
     Indication: Product used for unknown indication
     Dosage: UNK
     Route: 065
  37. AMISULPRIDE [Suspect]
     Active Substance: AMISULPRIDE
     Indication: Bipolar disorder
     Dosage: UNK
     Route: 065
  38. NAFRONYL [Suspect]
     Active Substance: NAFRONYL
     Indication: Product used for unknown indication
     Dosage: UNK
     Route: 065
  39. COCAINE [Suspect]
     Active Substance: COCAINE
     Indication: Product used for unknown indication
     Dosage: UNK
     Route: 065
  40. MEPHENESIN [Suspect]
     Active Substance: MEPHENESIN
     Indication: Product used for unknown indication
     Dosage: UNK
     Route: 065
  41. THIOCOLCHICOSIDE [Suspect]
     Active Substance: THIOCOLCHICOSIDE
     Indication: Product used for unknown indication
     Dosage: UNK
     Route: 048
     Dates: start: 2016, end: 2016
  42. PRAZEPAM [Suspect]
     Active Substance: PRAZEPAM
     Indication: Product used for unknown indication
     Dosage: UNK
     Route: 048
     Dates: start: 2016, end: 2016
  43. NIFUROXAZIDE [Suspect]
     Active Substance: NIFUROXAZIDE
     Indication: Product used for unknown indication
     Dosage: UNK
     Route: 048
     Dates: start: 2016, end: 2016
  44. XANAX [Concomitant]
     Active Substance: ALPRAZOLAM
     Indication: Psychiatric symptom
     Dosage: UNK
     Route: 048
  45. XANAX [Concomitant]
     Active Substance: ALPRAZOLAM
     Indication: Depression
  46. ARTANE [Concomitant]
     Active Substance: TRIHEXYPHENIDYL HYDROCHLORIDE
     Indication: Depression
     Dosage: UNK
     Route: 048
  47. ARTANE [Concomitant]
     Active Substance: TRIHEXYPHENIDYL HYDROCHLORIDE
     Indication: Psychiatric symptom
  48. ZOPICLONE [Concomitant]
     Active Substance: ZOPICLONE
     Indication: Depression
     Dosage: UNK
     Route: 048
  49. ZOPICLONE [Concomitant]
     Active Substance: ZOPICLONE
     Indication: Psychiatric symptom
  50. MIANSERIN HYDROCHLORIDE [Concomitant]
     Active Substance: MIANSERIN HYDROCHLORIDE
     Indication: Psychiatric symptom
     Dosage: UNK
     Route: 048
  51. MIANSERIN HYDROCHLORIDE [Concomitant]
     Active Substance: MIANSERIN HYDROCHLORIDE
     Indication: Depression
  52. AMISULPRIDE [Concomitant]
     Active Substance: AMISULPRIDE
     Indication: Psychiatric symptom
     Dosage: UNK
     Route: 048
  53. AMISULPRIDE [Concomitant]
     Active Substance: AMISULPRIDE
     Indication: Depression

REACTIONS (53)
  - Encephalopathy [Fatal]
  - Accidental poisoning [Fatal]
  - Transaminases increased [Fatal]
  - Labelled drug-drug interaction issue [Fatal]
  - Cell death [Fatal]
  - Hypoglycaemia [Fatal]
  - Myocarditis [Fatal]
  - Coma [Fatal]
  - Cardiomyopathy [Fatal]
  - Somnolence [Fatal]
  - Myocardial infarction [Fatal]
  - Confusional state [Fatal]
  - Drug screen false positive [Fatal]
  - Hyperglycaemia [Fatal]
  - Pulmonary oedema [Fatal]
  - Cholecystitis infective [Fatal]
  - Jaundice [Fatal]
  - Hepatitis acute [Fatal]
  - Hepatic enzyme increased [Fatal]
  - Coronary artery stenosis [Fatal]
  - White blood cell count increased [Fatal]
  - Hepatic cytolysis [Fatal]
  - Acute pulmonary oedema [Fatal]
  - Respiratory depression [Fatal]
  - Cardio-respiratory arrest [Fatal]
  - Pancreas infection [Fatal]
  - Stenosis [Fatal]
  - Gallbladder injury [Fatal]
  - Aspiration [Fatal]
  - Ketosis [Fatal]
  - Necrosis [Fatal]
  - Overdose [Fatal]
  - Drug abuse [Fatal]
  - Intentional self-injury [Fatal]
  - Drug interaction [Fatal]
  - Toxicity to various agents [Fatal]
  - Synovitis [Unknown]
  - Arrhythmia [Unknown]
  - Hypotension [Unknown]
  - Product prescribing issue [Unknown]
  - Hepatic failure [Unknown]
  - Hepatobiliary disease [Unknown]
  - Cardiac disorder [Unknown]
  - Inflammation [Unknown]
  - Hypersomnia [Unknown]
  - Monocytosis [Unknown]
  - Leukocytosis [Unknown]
  - Aggression [Unknown]
  - Panic attack [Unknown]
  - Logorrhoea [Unknown]
  - Intentional product misuse [Unknown]
  - Asteatosis [Unknown]
  - Thirst [Unknown]

NARRATIVE: CASE EVENT DATE: 20160101
